FAERS Safety Report 16162495 (Version 2)
Quarter: 2019Q3

REPORT INFORMATION
  Report Type: Spontaneous
  Country: BR (occurrence: BR)
  Receive Date: 20190405
  Receipt Date: 20190703
  Transmission Date: 20191004
  Serious: Yes (Death, Hospitalization, Other)
  Sender: FDA-Public Use
  Company Number: PHHY2019BR078273

PATIENT
  Age: 65 Year
  Sex: Female
  Weight: 70 kg

DRUGS (2)
  1. AFINITOR [Suspect]
     Active Substance: EVEROLIMUS
     Indication: BREAST CANCER METASTATIC
     Dosage: 1 DF, QD
     Route: 048
     Dates: start: 201712, end: 201801
  2. AFINITOR [Suspect]
     Active Substance: EVEROLIMUS
     Indication: METASTASES TO BONE
     Dosage: 10 MG, QD
     Route: 048
     Dates: end: 201812

REACTIONS (4)
  - Nausea [Recovered/Resolved]
  - Internal haemorrhage [Recovered/Resolved]
  - Vomiting [Fatal]
  - Septic shock [Fatal]

NARRATIVE: CASE EVENT DATE: 201712
